FAERS Safety Report 8595886-3 (Version None)
Quarter: 2012Q2

REPORT INFORMATION
  Report Type: 
  Country: None (occurrence: None)
  Receive Date: 20120423
  Receipt Date: 20101026
  Transmission Date: 20120825
  Serious: Yes (Other)
  Sender: FDA-Public Use
  Company Number: PHHY2010US67048

PATIENT
  Age: 59 Year
  Sex: Female
  Weight: 61 kg

DRUGS (8)
  1. ASPIRIN [Concomitant]
  2. FOLIC ACID [Concomitant]
  3. XANAX [Concomitant]
  4. NEUPOGEN [Concomitant]
  5. BLOOD TRANSFUSION, AUXILIARY PRODUCTS (NON INDREDIENTS/SUBSTANCES) [Concomitant]
  6. REVLIMID [Concomitant]
  7. EXJADE [Suspect]
     Indication: IRON OVERLOAD
     Dosage: 500 MG, DAILY, ORAL
     Route: 048
     Dates: start: 20101001
  8. VIDAZA [Concomitant]

REACTIONS (2)
  - DIARRHOEA [None]
  - SERUM FERRITIN INCREASED [None]
